FAERS Safety Report 7480431-6 (Version None)
Quarter: 2011Q2

REPORT INFORMATION
  Report Type: 
  Country: None (occurrence: None)
  Receive Date: 20110516
  Receipt Date: 20110503
  Transmission Date: 20111010
  Serious: Yes (Hospitalization)
  Sender: FDA-Public Use
  Company Number: CA-ELI_LILLY_AND_COMPANY-CA201105000996

PATIENT
  Age: 68 Year
  Sex: Male

DRUGS (17)
  1. FORTEO [Suspect]
     Indication: OSTEOPOROSIS
     Dosage: 20 UG, QD
     Route: 058
     Dates: start: 20100122
  2. SYMBICORT [Concomitant]
  3. PREDNISONE [Concomitant]
  4. SYNTHROID [Concomitant]
  5. CLONAZEPAM [Concomitant]
  6. CENTRUM [Concomitant]
  7. D-TABS [Concomitant]
  8. VENTOLIN                                /SCH/ [Concomitant]
  9. SPIRIVA [Concomitant]
  10. OCUFLOX [Concomitant]
  11. ZYLOPRIM [Concomitant]
  12. ADVAIR DISKUS 100/50 [Concomitant]
  13. UNIPHYL [Concomitant]
  14. FUCIDINE CAP [Concomitant]
  15. NEXIUM [Concomitant]
  16. AMLODIPINE BESYLATE [Concomitant]
  17. CALCIUM [Concomitant]

REACTIONS (4)
  - OXYGEN SATURATION DECREASED [None]
  - DYSPNOEA [None]
  - DRUG INEFFECTIVE [None]
  - LUNG DISORDER [None]
